FAERS Safety Report 13381113 (Version 1)
Quarter: 2017Q1

REPORT INFORMATION
  Report Type: Spontaneous
  Country: US (occurrence: US)
  Receive Date: 20170328
  Receipt Date: 20170328
  Transmission Date: 20170429
  Serious: No
  Sender: FDA-Public Use
  Company Number: None

PATIENT
  Age: 68 Year
  Sex: Female
  Weight: 58.51 kg

DRUGS (6)
  1. FLECANIDE [Concomitant]
     Active Substance: FLECAINIDE
  2. CIPROFLOXACIN. [Suspect]
     Active Substance: CIPROFLOXACIN
     Indication: TOOTH INFECTION
     Route: 048
     Dates: start: 20170314, end: 20170319
  3. D-3 [Concomitant]
     Active Substance: CHOLECALCIFEROL
  4. COD LIVER OIL [Concomitant]
     Active Substance: COD LIVER OIL
  5. KELP [Concomitant]
     Active Substance: KELP
  6. MULTI VITAMINS [Concomitant]
     Active Substance: VITAMINS

REACTIONS (3)
  - Conjunctivitis [None]
  - Condition aggravated [None]
  - Angular cheilitis [None]

NARRATIVE: CASE EVENT DATE: 20170316
